APPROVED DRUG PRODUCT: METOPROLOL SUCCINATE
Active Ingredient: METOPROLOL SUCCINATE
Strength: EQ 50MG TARTRATE
Dosage Form/Route: TABLET, EXTENDED RELEASE;ORAL
Application: A207465 | Product #001 | TE Code: AB
Applicant: CIPLA LTD
Approved: Oct 26, 2018 | RLD: No | RS: No | Type: RX